FAERS Safety Report 8556867-9 (Version None)
Quarter: 2012Q3

REPORT INFORMATION
  Report Type: 
  Country: None (occurrence: None)
  Receive Date: 20120801
  Receipt Date: 20120724
  Transmission Date: 20120928
  Serious: Yes (Hospitalization, Other)
  Sender: FDA-Public Use
  Company Number: BR-BAYER-2012-074432

PATIENT
  Age: 44 Year
  Sex: Female
  Weight: 92 kg

DRUGS (2)
  1. ESTRADIOL VALERATE/DIENOGEST [Suspect]
     Indication: CONTRACEPTION
     Dosage: 1 DF, QD
     Route: 048
     Dates: start: 20120101
  2. ESTRADIOL VALERATE/DIENOGEST [Suspect]
     Indication: MENORRHAGIA

REACTIONS (2)
  - HEADACHE [None]
  - NO ADVERSE EVENT [None]
